FAERS Safety Report 6432295-7 (Version None)
Quarter: 2009Q4

REPORT INFORMATION
  Report Type: 
  Country: None (occurrence: None)
  Receive Date: 20091105
  Receipt Date: 20091029
  Transmission Date: 20100525
  Serious: Yes (Other)
  Sender: FDA-Public Use
  Company Number: SPV1-2009-02153

PATIENT
  Age: 9 Year
  Sex: Female
  Weight: 31.7 kg

DRUGS (1)
  1. VYVANSE [Suspect]
     Indication: ATTENTION DEFICIT/HYPERACTIVITY DISORDER
     Dosage: 20 MG, 1X/DAY: QD, ORAL
     Route: 048
     Dates: start: 20090801, end: 20091001

REACTIONS (6)
  - ANGER [None]
  - ANXIETY [None]
  - CRYING [None]
  - MAJOR DEPRESSION [None]
  - SELF INJURIOUS BEHAVIOUR [None]
  - SUICIDAL IDEATION [None]
